FAERS Safety Report 8364919-1 (Version None)
Quarter: 2012Q2

REPORT INFORMATION
  Report Type: 
  Country: None (occurrence: None)
  Receive Date: 20120514
  Receipt Date: 20120508
  Transmission Date: 20120825
  Serious: No
  Sender: FDA-Public Use
  Company Number: US-PFIZER INC-2012095160

PATIENT
  Sex: Female

DRUGS (4)
  1. SYNTHROID [Concomitant]
     Dosage: UNK
  2. LEXAPRO [Concomitant]
     Dosage: UNK
  3. ADVAIR DISKUS 100/50 [Concomitant]
     Dosage: UNK
  4. FLECTOR [Suspect]
     Indication: BACK PAIN
     Dosage: UNK (1 PATCH BID)
     Route: 061
     Dates: start: 20120403, end: 20120408

REACTIONS (5)
  - DYSPNOEA [None]
  - DIZZINESS [None]
  - ASTHMA [None]
  - PALPITATIONS [None]
  - HEADACHE [None]
